FAERS Safety Report 12538257 (Version 2)
Quarter: 2016Q3

REPORT INFORMATION
  Report Type: Spontaneous
  Country: US (occurrence: US)
  Receive Date: 20160707
  Receipt Date: 20160808
  Transmission Date: 20161109
  Serious: Yes (Death, Hospitalization, Other)
  Sender: FDA-Public Use
  Company Number: US-009507513-1607USA000542

PATIENT
  Age: 70 Year
  Sex: Male

DRUGS (2)
  1. CUBICIN [Concomitant]
     Active Substance: DAPTOMYCIN
  2. CUBICIN [Suspect]
     Active Substance: DAPTOMYCIN
     Indication: LOCALISED INFECTION
     Dosage: UNK
     Route: 042
     Dates: start: 20160601, end: 20160619

REACTIONS (2)
  - Cerebrovascular accident [Fatal]
  - Wound drainage [Unknown]

NARRATIVE: CASE EVENT DATE: 201606
